FAERS Safety Report 8646941 (Version 4)
Quarter: 2013Q3

REPORT INFORMATION
  Report Type: Spontaneous
  Country: JP (occurrence: JP)
  Receive Date: 20120703
  Receipt Date: 20130902
  Transmission Date: 20140515
  Serious: Yes (Death, Hospitalization)
  Sender: FDA-Public Use
  Company Number: JP-JNJFOC-20120700271

PATIENT
  Age: 59 Year
  Sex: Male

DRUGS (5)
  1. TRAMCET [Suspect]
     Indication: PRODUCT USED FOR UNKNOWN INDICATION
     Dosage: 4 DF 1 PER 1 DAY TABLET
     Route: 048
  2. OPSO [Concomitant]
     Route: 048
  3. WARFARIN POTASSIUM [Concomitant]
     Route: 048
  4. MORPHINE HYDROCHLORIDE [Concomitant]
     Route: 048
  5. AN UNKNOWN MEDICATION [Concomitant]
     Route: 065

REACTIONS (2)
  - General physical health deterioration [Fatal]
  - Oesophageal varices haemorrhage [Recovering/Resolving]
